FAERS Safety Report 7741210-5 (Version None)
Quarter: 2011Q3

REPORT INFORMATION
  Report Type: 
  Country: None (occurrence: None)
  Receive Date: 20110909
  Receipt Date: 20110831
  Transmission Date: 20111222
  Serious: Yes (Life-Threatening, Congenital Anomaly)
  Sender: FDA-Public Use
  Company Number: DE-BAYER-2011-080463

PATIENT

DRUGS (3)
  1. AVELOX [Suspect]
     Dosage: DAILY DOSE 40 MG
     Route: 064
     Dates: start: 20091222, end: 20091228
  2. FOLIC ACID [Concomitant]
     Dosage: UNK
     Route: 064
  3. GELOMYRTOL [Concomitant]
     Dosage: UNK
     Route: 064
     Dates: start: 20100108, end: 20100205

REACTIONS (2)
  - MENINGOMYELOCELE [None]
  - ARNOLD-CHIARI MALFORMATION [None]
